FAERS Safety Report 12746224 (Version 1)
Quarter: 2016Q3

REPORT INFORMATION
  Report Type: Spontaneous
  Country: US (occurrence: US)
  Receive Date: 20160915
  Receipt Date: 20160915
  Transmission Date: 20161109
  Serious: No
  Sender: FDA-Public Use
  Company Number: None

PATIENT
  Age: 40 Year
  Sex: Male
  Weight: 82.8 kg

DRUGS (1)
  1. SULFAMETHOXAZOLE/TMP DS [Suspect]
     Active Substance: SULFAMETHOXAZOLE\TRIMETHOPRIM
     Indication: TESTICULAR PAIN
     Route: 048
     Dates: start: 20160826, end: 20160905

REACTIONS (1)
  - Rash [None]

NARRATIVE: CASE EVENT DATE: 20160903
